FAERS Safety Report 23299179 (Version 1)
Quarter: 2023Q4

REPORT INFORMATION
  Report Type: Report from Study
  Country: US (occurrence: US)
  Receive Date: 20231215
  Receipt Date: 20231215
  Transmission Date: 20240110
  Serious: No
  Sender: FDA-Public Use
  Company Number: US-ALXN-A202310630

PATIENT
  Sex: Male

DRUGS (2)
  1. SOLIRIS [Suspect]
     Active Substance: ECULIZUMAB
     Indication: Myasthenia gravis
     Dosage: UNK
     Route: 065
     Dates: end: 202209
  2. ULTOMIRIS [Suspect]
     Active Substance: RAVULIZUMAB-CWVZ
     Indication: Myasthenia gravis
     Dosage: UNK
     Route: 065

REACTIONS (9)
  - Amnesia [Unknown]
  - Memory impairment [Unknown]
  - Fracture pain [Recovering/Resolving]
  - Sciatica [Unknown]
  - Gait disturbance [Unknown]
  - Brain fog [Unknown]
  - Fracture [Recovering/Resolving]
  - Urinary tract infection [Unknown]
  - Dyspnoea [Unknown]
